FAERS Safety Report 8264729-X (Version None)
Quarter: 2012Q2

REPORT INFORMATION
  Report Type: 
  Country: None (occurrence: None)
  Receive Date: 20120406
  Receipt Date: 20120327
  Transmission Date: 20120825
  Serious: Yes (Disabling, Other)
  Sender: FDA-Public Use
  Company Number: GB-JNJFOC-20120209032

PATIENT
  Sex: Female

DRUGS (5)
  1. ALLOPURINOL [Concomitant]
     Route: 065
     Dates: start: 20090101
  2. REMICADE [Suspect]
     Indication: PSORIASIS
     Dosage: WEEK 0.2,6 THEN ONCE IN 8 WEEKS
     Route: 042
     Dates: start: 20110517, end: 20111221
  3. SIMVASTATIN [Concomitant]
     Route: 065
     Dates: start: 20050101
  4. AMLODIPINE [Concomitant]
     Route: 065
     Dates: start: 20050101
  5. BENDROFLUMETHIAZIDE [Concomitant]
     Route: 065
     Dates: start: 20050101

REACTIONS (4)
  - INTERSTITIAL LUNG DISEASE [None]
  - GUTTATE PSORIASIS [None]
  - ALVEOLITIS [None]
  - PHARYNGITIS [None]
